FAERS Safety Report 19877206 (Version 1)
Quarter: 2021Q3

REPORT INFORMATION
  Report Type: Spontaneous
  Country: US (occurrence: US)
  Receive Date: 20210923
  Receipt Date: 20210923
  Transmission Date: 20211014
  Serious: Yes (Hospitalization)
  Sender: FDA-Public Use
  Company Number: None

PATIENT
  Age: 68 Year
  Sex: Female

DRUGS (2)
  1. ELIQUIS [Concomitant]
     Active Substance: APIXABAN
  2. VERZENIO [Suspect]
     Active Substance: ABEMACICLIB
     Indication: BREAST CANCER
     Route: 048
     Dates: start: 20200523

REACTIONS (5)
  - Abdominal pain upper [None]
  - Confusional state [None]
  - Diarrhoea [None]
  - Vomiting [None]
  - Red blood cell count decreased [None]

NARRATIVE: CASE EVENT DATE: 20210906
